FAERS Safety Report 5896784-6 (Version None)
Quarter: 2008Q3

REPORT INFORMATION
  Report Type: 
  Country: None (occurrence: None)
  Receive Date: 20080924
  Receipt Date: 20080613
  Transmission Date: 20090109
  Serious: Yes (Hospitalization, Other)
  Sender: FDA-Public Use
  Company Number: US-ASTRAZENECA-2007UW26652

PATIENT
  Age: 18219 Day
  Sex: Male
  Weight: 81.6 kg

DRUGS (13)
  1. SEROQUEL [Suspect]
     Indication: SLEEP DISORDER
     Route: 048
     Dates: start: 20030101, end: 20040101
  2. SEROQUEL [Suspect]
     Indication: DEPRESSION
     Route: 048
     Dates: start: 20030101, end: 20040101
  3. SEROQUEL [Suspect]
     Route: 048
     Dates: start: 20050305, end: 20051114
  4. SEROQUEL [Suspect]
     Route: 048
     Dates: start: 20050305, end: 20051114
  5. SEROQUEL [Suspect]
     Route: 048
     Dates: start: 20051216, end: 20060818
  6. SEROQUEL [Suspect]
     Route: 048
     Dates: start: 20051216, end: 20060818
  7. SEROQUEL [Suspect]
     Route: 048
     Dates: start: 20070509
  8. SEROQUEL [Suspect]
     Route: 048
     Dates: start: 20070509
  9. ABILIFY [Concomitant]
     Route: 048
     Dates: start: 20050831
  10. RISPERDAL [Concomitant]
     Route: 048
     Dates: start: 19990101
  11. THORAZINE [Concomitant]
     Dates: start: 20051129
  12. ZYPREXA [Concomitant]
     Route: 048
     Dates: start: 20010101
  13. EFFEXOR [Concomitant]
     Route: 048
     Dates: start: 20050601

REACTIONS (6)
  - BLOOD CHOLESTEROL INCREASED [None]
  - BLOOD TRIGLYCERIDES INCREASED [None]
  - DIABETES MELLITUS [None]
  - DIZZINESS [None]
  - PANCREATITIS [None]
  - POLLAKIURIA [None]
